FAERS Safety Report 19857398 (Version 2)
Quarter: 2021Q3

REPORT INFORMATION
  Report Type: Report from Study
  Country: AT (occurrence: AT)
  Receive Date: 20210920
  Receipt Date: 20210930
  Transmission Date: 20211014
  Serious: Yes (Other)
  Sender: FDA-Public Use
  Company Number: AT-MYLANLABS-2021M1063025

PATIENT
  Age: 72 Year
  Sex: Female
  Weight: 53 kg

DRUGS (22)
  1. DENOSUMAB [Suspect]
     Active Substance: DENOSUMAB
     Indication: HER2 POSITIVE BREAST CANCER
     Dosage: 120 MILLIGRAM, Q28D
     Route: 058
     Dates: start: 20161121, end: 20210126
  2. EUTHYROX [Concomitant]
     Active Substance: LEVOTHYROXINE SODIUM
     Dosage: 75 MILLIGRAM, QD (START DATE: 23?FEB?2021)
     Route: 048
     Dates: start: 20210223
  3. FULVESTRANT. [Suspect]
     Active Substance: FULVESTRANT
     Dosage: 500 MILLIGRAM, Q28D
     Route: 058
     Dates: start: 20200716
  4. TRASTUZUMAB. [Suspect]
     Active Substance: TRASTUZUMAB
     Indication: BREAST CANCER
     Dosage: 372 MILLIGRAM, Q28D
     Route: 041
     Dates: start: 20180719, end: 20200227
  5. PERTUZUMAB. [Suspect]
     Active Substance: PERTUZUMAB
     Indication: BREAST CANCER
     Dosage: 420 MILLIGRAM, Q28D
     Route: 042
     Dates: start: 20180719, end: 20200227
  6. LISINOPRIL. [Concomitant]
     Active Substance: LISINOPRIL
     Dosage: UNK
     Route: 048
     Dates: start: 201701
  7. ATORVASTATIN [Concomitant]
     Active Substance: ATORVASTATIN
     Indication: HYPERCHOLESTEROLAEMIA
     Dosage: 20 MILLIGRAM
     Route: 048
     Dates: start: 201701, end: 201701
  8. DOCETAXEL. [Suspect]
     Active Substance: DOCETAXEL
     Indication: HER2 POSITIVE BREAST CANCER
     Dosage: 75 MILLIGRAM PER SQUARE METER, Q3W
     Route: 042
     Dates: start: 20160629, end: 20161013
  9. DIPRODERM                          /00008504/ [Concomitant]
     Indication: RASH
     Dosage: UNK (0.5 DAY)
     Route: 061
     Dates: start: 20180121
  10. RIBOCICLIB. [Suspect]
     Active Substance: RIBOCICLIB
     Indication: HER2 POSITIVE BREAST CANCER
     Dosage: 600 MILLIGRAM
     Route: 048
     Dates: start: 20200716, end: 20200814
  11. TRASTUZUMAB. [Suspect]
     Active Substance: TRASTUZUMAB
     Indication: BREAST CANCER METASTATIC
     Dosage: 354 MILLIGRAM, Q3W
     Route: 041
     Dates: start: 20160629, end: 20180621
  12. EUTHYROX [Concomitant]
     Active Substance: LEVOTHYROXINE SODIUM
     Dosage: 100 MICROGRAM, QD (START DATE: 22?FEB?2021)
     Route: 048
  13. NOMEXOR [Concomitant]
     Active Substance: NEBIVOLOL HYDROCHLORIDE
     Dosage: UNK
     Route: 048
     Dates: start: 20170115
  14. LETROZOLE. [Suspect]
     Active Substance: LETROZOLE
     Indication: HER2 POSITIVE BREAST CANCER
     Dosage: 2.5 MILLIGRAM, QD
     Route: 048
     Dates: start: 20161021, end: 20200629
  15. RIBOCICLIB. [Suspect]
     Active Substance: RIBOCICLIB
     Dosage: 400 MILLIGRAM
     Route: 048
     Dates: start: 20201024
  16. PERTUZUMAB. [Suspect]
     Active Substance: PERTUZUMAB
     Indication: BREAST CANCER METASTATIC
     Dosage: 420 MILLIGRAM, Q3W
     Route: 042
     Dates: start: 20160629, end: 20180621
  17. THROMBO ASS [Concomitant]
     Active Substance: ASPIRIN
     Dosage: UNK
     Dates: start: 20170115
  18. FULVESTRANT. [Suspect]
     Active Substance: FULVESTRANT
     Indication: HER2 POSITIVE BREAST CANCER
     Dosage: 500 MILLIGRAM, Q28D
     Route: 058
     Dates: start: 20200716
  19. TRASTUZUMAB. [Suspect]
     Active Substance: TRASTUZUMAB
     Indication: HER2 POSITIVE BREAST CANCER
     Dosage: 372 MILLIGRAM, Q3W
     Route: 041
     Dates: start: 20200227, end: 20200320
  20. PERTUZUMAB. [Suspect]
     Active Substance: PERTUZUMAB
     Indication: HER2 POSITIVE BREAST CANCER
     Dosage: 420 MILLIGRAM, Q3W
     Route: 042
     Dates: start: 20200227, end: 20200320
  21. BETAISODONA [Concomitant]
     Active Substance: POVIDONE-IODINE
     Indication: PARONYCHIA
     Dosage: UNK
     Route: 061
     Dates: start: 20201111
  22. ADVANTAN [Concomitant]
     Active Substance: METHYLPREDNISOLONE ACEPONATE
     Indication: PALMAR-PLANTAR ERYTHRODYSAESTHESIA SYNDROME
     Dosage: UNK
     Route: 061
     Dates: start: 20201111

REACTIONS (1)
  - Osteonecrosis of jaw [Recovering/Resolving]

NARRATIVE: CASE EVENT DATE: 20201215
